FAERS Safety Report 12728433 (Version 1)
Quarter: 2016Q3

REPORT INFORMATION
  Report Type: Report from Study
  Country: US (occurrence: US)
  Receive Date: 20160909
  Receipt Date: 20160909
  Transmission Date: 20161109
  Serious: Yes (Other)
  Sender: FDA-Public Use
  Company Number: US-PFIZER INC-2016351918

PATIENT
  Age: 2 Year
  Sex: Male
  Weight: 11.79 kg

DRUGS (11)
  1. CYTARABINE. [Suspect]
     Active Substance: CYTARABINE
     Indication: ACUTE LYMPHOCYTIC LEUKAEMIA
     Dosage: 20 MG, SINGLE
     Route: 037
     Dates: start: 20160802, end: 20160819
  2. METHOTREXATE SODIUM. [Suspect]
     Active Substance: METHOTREXATE SODIUM
     Indication: ACUTE LYMPHOCYTIC LEUKAEMIA
     Dosage: 10 MG,(25MG/ML), SINGLE
     Route: 037
     Dates: start: 20160802, end: 20160819
  3. INOTUZUMAB OZOGAMICIN [Suspect]
     Active Substance: INOTUZUMAB OZOGAMICIN
     Dosage: 0.28 MG, 0.5 MG/M2, ONE TIME
     Route: 042
     Dates: start: 20160722, end: 20160722
  4. INOTUZUMAB OZOGAMICIN [Suspect]
     Active Substance: INOTUZUMAB OZOGAMICIN
     Indication: ACUTE LYMPHOCYTIC LEUKAEMIA RECURRENT
     Dosage: 0.45 MG, 0.8 MG/M2, ONCE
     Route: 042
     Dates: start: 20160715, end: 20160715
  5. INOTUZUMAB OZOGAMICIN [Suspect]
     Active Substance: INOTUZUMAB OZOGAMICIN
     Dosage: 0.28 MG, 0.5 MG/M2, ONE TIME
     Route: 042
     Dates: start: 20160729, end: 20160729
  6. HYDROCORTISONE. [Concomitant]
     Active Substance: HYDROCORTISONE
     Indication: ACUTE LYMPHOCYTIC LEUKAEMIA RECURRENT
     Dosage: 10MG (100M/M2), ONE TIME
     Route: 037
     Dates: start: 20160802, end: 20160802
  7. MEROPENEM. [Concomitant]
     Active Substance: MEROPENEM
     Indication: ENTEROBACTER INFECTION
     Dosage: 500 MG, EVERY 8 HOURS
     Route: 042
     Dates: start: 20160712
  8. VINCRISTINE [Concomitant]
     Active Substance: VINCRISTINE
     Indication: ACUTE LYMPHOCYTIC LEUKAEMIA RECURRENT
     Dosage: 0.83 MG, 1.5 MG/M2, ONCE A DAY
     Route: 042
     Dates: start: 20160707, end: 20160707
  9. INOTUZUMAB OZOGAMICIN [Suspect]
     Active Substance: INOTUZUMAB OZOGAMICIN
     Dosage: 0.45 MG, 0.8 MG/M2, ONCE A WEEK
     Route: 042
     Dates: start: 20160819
  10. DEXAMETHASONE. [Concomitant]
     Active Substance: DEXAMETHASONE
     Indication: ACUTE LYMPHOCYTIC LEUKAEMIA RECURRENT
     Dosage: 2.752 MG, 5 MG/M2, ONCE
     Route: 042
     Dates: start: 20160707, end: 20160707
  11. AMBISOME [Concomitant]
     Active Substance: AMPHOTERICIN B
     Indication: PNEUMONIA FUNGAL
     Dosage: 80 MG, ONCE AT 15ML/HR OVER 2 HOURS
     Route: 042
     Dates: start: 20160715, end: 20160715

REACTIONS (36)
  - Depressed level of consciousness [Unknown]
  - Hypogammaglobulinaemia [Unknown]
  - Hypotension [Recovered/Resolved]
  - Hypertension [Recovered/Resolved]
  - Blood creatinine increased [Unknown]
  - Blood urea increased [Recovered/Resolved]
  - Brain oedema [Unknown]
  - Leukoencephalopathy [Unknown]
  - Blood bilirubin increased [Recovered/Resolved]
  - Blood chloride decreased [Unknown]
  - White blood cell count decreased [Unknown]
  - Febrile neutropenia [Recovering/Resolving]
  - Wound infection [Not Recovered/Not Resolved]
  - Diarrhoea [Recovered/Resolved]
  - Hyponatraemia [Recovered/Resolved]
  - Mucosal haemorrhage [Not Recovered/Not Resolved]
  - Hypophosphataemia [Unknown]
  - Amylase decreased [Not Recovered/Not Resolved]
  - Lethargy [Unknown]
  - Hypokalaemia [Recovered/Resolved]
  - Mucosal inflammation [Unknown]
  - Lipase decreased [Not Recovered/Not Resolved]
  - Blood uric acid decreased [Not Recovered/Not Resolved]
  - Oxygen saturation decreased [Unknown]
  - Glossopharyngeal nerve disorder [Unknown]
  - Swelling face [Recovering/Resolving]
  - Vomiting [Recovered/Resolved]
  - Hypoalbuminaemia [Not Recovered/Not Resolved]
  - Sinus tachycardia [Unknown]
  - Hypersensitivity [Recovered/Resolved]
  - Platelet count decreased [Unknown]
  - Hypomagnesaemia [Unknown]
  - Pyrexia [Recovering/Resolving]
  - Protein total abnormal [Not Recovered/Not Resolved]
  - Hypocalcaemia [Recovered/Resolved]
  - Carbon dioxide abnormal [Recovered/Resolved]

NARRATIVE: CASE EVENT DATE: 201607
